FAERS Safety Report 11393928 (Version 1)
Quarter: 2015Q3

REPORT INFORMATION
  Report Type: Spontaneous
  Country: US (occurrence: None)
  Receive Date: 20150817
  Receipt Date: 20150817
  Transmission Date: 20151125
  Serious: Yes (Life-Threatening)
  Sender: FDA-Public Use
  Company Number: None

PATIENT
  Age: 31 Year
  Sex: Female
  Weight: 86.18 kg

DRUGS (1)
  1. NORCO [Suspect]
     Active Substance: ACETAMINOPHEN\HYDROCODONE BITARTRATE

REACTIONS (8)
  - Fatigue [None]
  - Apparent death [None]
  - Gait disturbance [None]
  - Respiratory arrest [None]
  - Heart rate increased [None]
  - Somnolence [None]
  - Bradyphrenia [None]
  - Aphasia [None]

NARRATIVE: CASE EVENT DATE: 20120505
